FAERS Safety Report 7299278-9 (Version None)
Quarter: 2011Q1

REPORT INFORMATION
  Report Type: 
  Country: None (occurrence: None)
  Receive Date: 20110209
  Receipt Date: 20110131
  Transmission Date: 20110831
  Serious: Yes (Congenital Anomaly, Other)
  Sender: FDA-Public Use
  Company Number: BR-ACCORD-008113

PATIENT

DRUGS (2)
  1. MYCOPHENOLATE MOFETIL [Suspect]
     Dosage: 500.00-MG- / TRANSPLACENTAL
     Route: 064
  2. TACROLIMUS [Suspect]
     Dosage: 3.00-MG / TRANSPLACENTAL
     Route: 064

REACTIONS (7)
  - MICROPHTHALMOS [None]
  - ANOMALY OF MIDDLE EAR CONGENITAL [None]
  - UMBILICAL HERNIA [None]
  - PULMONARY VALVE STENOSIS [None]
  - MULTIPLE CONGENITAL ABNORMALITIES [None]
  - MATERNAL DRUGS AFFECTING FOETUS [None]
  - PALATAL DISORDER [None]
